FAERS Safety Report 7936719-5 (Version None)
Quarter: 2011Q4

REPORT INFORMATION
  Report Type: 
  Country: None (occurrence: None)
  Receive Date: 20111123
  Receipt Date: 20111118
  Transmission Date: 20120403
  Serious: Yes (Hospitalization, Other)
  Sender: FDA-Public Use
  Company Number: ES-SANOFI-AVENTIS-2011SA074757

PATIENT
  Age: 60 Year
  Sex: Male
  Weight: 77 kg

DRUGS (4)
  1. MULTAQ [Suspect]
     Indication: ATRIAL FIBRILLATION
     Route: 048
     Dates: start: 20101222, end: 20111021
  2. AMIODARONE HCL [Suspect]
     Indication: ATRIAL FIBRILLATION
     Route: 048
     Dates: start: 20111021
  3. SINTROM [Concomitant]
  4. DIOVAN [Concomitant]

REACTIONS (10)
  - PAIN [None]
  - ATRIAL FIBRILLATION [None]
  - OEDEMA [None]
  - ACUTE PULMONARY OEDEMA [None]
  - CARDIAC FAILURE [None]
  - UNDERDOSE [None]
  - EJECTION FRACTION DECREASED [None]
  - DRUG INEFFECTIVE [None]
  - ASPHYXIA [None]
  - CARDIOGENIC SHOCK [None]
